FAERS Safety Report 4642076-2 (Version None)
Quarter: 2005Q2

REPORT INFORMATION
  Report Type: 
  Country: None (occurrence: None)
  Receive Date: 20050421
  Receipt Date: 20050421
  Transmission Date: 20051028
  Serious: Yes (Other)
  Sender: FDA-Public Use
  Company Number: None

PATIENT
  Sex: Female

DRUGS (4)
  1. CITALOPRAM HYDROBROMIDE [Suspect]
     Indication: DEPRESSION
     Dosage: 1 TABLET DAILY BY MOUTH AS DIRECTED
     Route: 048
     Dates: start: 20041224, end: 20050124
  2. LOTENSIN [Concomitant]
  3. ZYRTEC [Concomitant]
  4. CLIMARA [Concomitant]

REACTIONS (2)
  - NIGHTMARE [None]
  - PHARMACEUTICAL PRODUCT COMPLAINT [None]
